FAERS Safety Report 5387115-9 (Version None)
Quarter: 2007Q3

REPORT INFORMATION
  Report Type: 
  Country: None (occurrence: None)
  Receive Date: 20070711
  Receipt Date: 20070629
  Transmission Date: 20080115
  Serious: Yes (Other)
  Sender: FDA-Public Use
  Company Number: 2007BI014074

PATIENT
  Age: 60 Year
  Sex: Female

DRUGS (1)
  1. AVONEX [Suspect]
     Indication: MULTIPLE SCLEROSIS
     Dosage: 30 UG;QW;IM
     Route: 030
     Dates: start: 20050526, end: 20070624

REACTIONS (2)
  - BREAST CANCER FEMALE [None]
  - SKIN REACTION [None]
